FAERS Safety Report 14186502 (Version 3)
Quarter: 2019Q2

REPORT INFORMATION
  Report Type: Report from Study
  Country: US (occurrence: US)
  Receive Date: 20171114
  Receipt Date: 20190523
  Transmission Date: 20190711
  Serious: No
  Sender: FDA-Public Use
  Company Number: PHEH2017US036731

PATIENT
  Sex: Female

DRUGS (1)
  1. TASIGNA [Suspect]
     Active Substance: NILOTINIB
     Indication: PRODUCT USED FOR UNKNOWN INDICATION
     Route: 065

REACTIONS (6)
  - Laryngitis [Unknown]
  - Nasopharyngitis [Unknown]
  - Malaise [Unknown]
  - Mydriasis [Unknown]
  - Cough [Unknown]
  - Visual impairment [Unknown]
